FAERS Safety Report 15484016 (Version 2)
Quarter: 2018Q4

REPORT INFORMATION
  Report Type: Report from Study
  Country: CA (occurrence: CA)
  Receive Date: 20181010
  Receipt Date: 20181015
  Transmission Date: 20190205
  Serious: Yes (Hospitalization, Disabling)
  Sender: FDA-Public Use
  Company Number: CA-ASTRAZENECA-2018SF31214

PATIENT
  Age: 24321 Day
  Sex: Female

DRUGS (12)
  1. GABAPENTIN. [Concomitant]
     Active Substance: GABAPENTIN
     Indication: PERIPHERAL SENSORY NEUROPATHY
     Route: 048
  2. ZINC CITRATE [Concomitant]
     Active Substance: ZINC CITRATE
     Indication: PROPHYLAXIS
     Dosage: ONE TABLET DAILY
     Route: 048
  3. LACTOBACILLUS SPP [Concomitant]
     Indication: PROPHYLAXIS
     Dosage: ONE TABLET DAILY
     Route: 048
  4. CELEXA [Concomitant]
     Active Substance: CITALOPRAM HYDROBROMIDE
     Indication: ANXIETY
     Route: 048
  5. OLAPARIB. [Suspect]
     Active Substance: OLAPARIB
     Indication: OVARIAN CANCER
     Route: 048
     Dates: start: 20180830, end: 20180911
  6. ACETYLCYSTEINE. [Concomitant]
     Active Substance: ACETYLCYSTEINE
     Indication: COMPUTERISED TOMOGRAM
     Dosage: 100.0MG/ML AS REQUIRED
     Route: 048
  7. REISHI MUSHROOM [Concomitant]
     Indication: PROPHYLAXIS
     Dosage: ONE TABLET DAILY
     Route: 048
  8. COD-LIVER OIL [Concomitant]
     Active Substance: COD LIVER OIL
     Indication: PROPHYLAXIS
     Dosage: ONE TABLET DAILY
     Route: 048
  9. OLAPARIB. [Suspect]
     Active Substance: OLAPARIB
     Indication: OVARIAN CANCER
     Route: 048
     Dates: start: 20180912
  10. VITAMIN D [Concomitant]
     Active Substance: CHOLECALCIFEROL
     Indication: PROPHYLAXIS
     Dosage: ONE TABLET DAILY
     Route: 048
  11. VITAMIN C [Concomitant]
     Active Substance: ASCORBIC ACID
     Indication: PROPHYLAXIS
     Dosage: ONE TABLET DAILY
     Route: 048
  12. TYLENOL [Concomitant]
     Active Substance: ACETAMINOPHEN
     Indication: HEADACHE
     Dosage: 325.0MG AS REQUIRED
     Route: 048
     Dates: start: 20180921

REACTIONS (1)
  - Intestinal obstruction [Recovered/Resolved]

NARRATIVE: CASE EVENT DATE: 20181002
